FAERS Safety Report 25878518 (Version 2)
Quarter: 2025Q4

REPORT INFORMATION
  Report Type: Spontaneous
  Country: US (occurrence: US)
  Receive Date: 20251003
  Receipt Date: 20251015
  Transmission Date: 20260118
  Serious: No
  Sender: LUPIN
  Company Number: US-LUPIN PHARMACEUTICALS INC.-2025-08781

PATIENT
  Age: 57 Year
  Weight: 63.492 kg

DRUGS (2)
  1. XOPENEX HFA [Suspect]
     Active Substance: LEVALBUTEROL TARTRATE
     Indication: Product used for unknown indication
     Dosage: PRN (AS-NEEDED)
  2. XOPENEX HFA [Suspect]
     Active Substance: LEVALBUTEROL TARTRATE
     Dosage: PRN (AS-NEEDED)

REACTIONS (3)
  - Dyspnoea [Unknown]
  - Device delivery system issue [Unknown]
  - Drug dose omission by device [Unknown]
